FAERS Safety Report 5694187-0 (Version None)
Quarter: 2008Q2

REPORT INFORMATION
  Report Type: 
  Country: None (occurrence: None)
  Receive Date: 20080402
  Receipt Date: 20080320
  Transmission Date: 20081010
  Serious: Yes (Other)
  Sender: FDA-Public Use
  Company Number: 2008007040

PATIENT
  Age: 37 Year
  Sex: Female

DRUGS (1)
  1. LISTERINE WHITENING PRE-BRUSH RINCE (NO ACTIVE INGREDIENT) [Suspect]
     Indication: BREATH ODOUR
     Dosage: TWICE, ORAL
     Route: 048
     Dates: start: 20080315, end: 20080315

REACTIONS (2)
  - BREATH ODOUR [None]
  - ROAD TRAFFIC ACCIDENT [None]
